FAERS Safety Report 7772024-8 (Version None)
Quarter: 2011Q3

REPORT INFORMATION
  Report Type: 
  Country: None (occurrence: None)
  Receive Date: 20110922
  Receipt Date: 20110225
  Transmission Date: 20111222
  Serious: No
  Sender: FDA-Public Use
  Company Number: US-ASTRAZENECA-2011SE10733

PATIENT
  Age: 36 Year
  Sex: Male
  Weight: 113.4 kg

DRUGS (4)
  1. PROZAC [Concomitant]
  2. SEROQUEL XR [Suspect]
     Dosage: TAKES 150 MG TWICE A DAY APPROX 2-3 DAYS PER MONTH
     Route: 048
     Dates: start: 20100101
  3. SEROQUEL XR [Suspect]
     Indication: BIPOLAR I DISORDER
     Dosage: TAKES 150 MG TWICE A DAY APPROX 2-3 DAYS PER MONTH
     Route: 048
     Dates: start: 20100101
  4. DIAZEPAM [Concomitant]

REACTIONS (2)
  - INCORRECT DOSE ADMINISTERED [None]
  - MOOD SWINGS [None]
